FAERS Safety Report 8803134 (Version 1)
Quarter: 2012Q4

REPORT INFORMATION
  Report Type: 
  Country: IT (occurrence: IT)
  Receive Date: 20120924
  Receipt Date: 20120924
  Transmission Date: 20130627
  Serious: Yes (Hospitalization)
  Sender: FDA-Public Use
  Company Number: IT-TEVA-358612ISR

PATIENT
  Age: 64 Year
  Sex: Female

DRUGS (3)
  1. CARBAMAZEPINE [Suspect]
     Indication: EPILEPSY
     Dosage: 900 mg/day
     Route: 065
  2. CEFIXIME [Interacting]
     Indication: RESPIRATORY TRACT INFECTION
     Dosage: normal therapeutic doses
     Route: 065
  3. LEVETIRACETAM [Concomitant]
     Indication: EPILEPSY
     Dosage: 3,000 mg/day
     Route: 065

REACTIONS (2)
  - Status epilepticus [Recovering/Resolving]
  - Drug interaction [Unknown]
